FAERS Safety Report 24047754 (Version 1)
Quarter: 2024Q3

REPORT INFORMATION
  Report Type: Spontaneous
  Country: ES (occurrence: ES)
  Receive Date: 20240703
  Receipt Date: 20240703
  Transmission Date: 20241017
  Serious: Yes (Hospitalization)
  Sender: MYLAN
  Company Number: None

PATIENT
  Age: 75 Year
  Sex: Male

DRUGS (7)
  1. CLOPIDOGREL [Interacting]
     Active Substance: CLOPIDOGREL BISULFATE
     Indication: Acute myocardial infarction
     Dosage: 75 MILLIGRAM, QD
     Route: 048
     Dates: start: 20240507, end: 20240523
  2. PRASUGREL [Interacting]
     Active Substance: PRASUGREL
     Indication: Acute myocardial infarction
     Dosage: 90 MILLIGRAM, 1 TOTAL
     Route: 048
     Dates: start: 20240504, end: 20240507
  3. ENOXAPARIN [Interacting]
     Active Substance: ENOXAPARIN
     Indication: Acute myocardial infarction
     Dosage: 40 MILLIGRAM, QD
     Route: 058
     Dates: start: 20240504, end: 20240510
  4. COLCHICINE [Interacting]
     Active Substance: COLCHICINE
     Indication: Pericarditis
     Dosage: 0.5 MILLIGRAM, BID (12 HOURS)
     Route: 048
     Dates: start: 20240507, end: 20240523
  5. ASPIRIN [Interacting]
     Active Substance: ASPIRIN
     Indication: Pericarditis
     Dosage: 500 MILLIGRAM, Q8H (20 TABLETS)
     Route: 048
     Dates: start: 20240507, end: 20240523
  6. ASPIRIN [Interacting]
     Active Substance: ASPIRIN
     Indication: Hypertensive heart disease
     Dosage: 100 MILLIGRAM, QD(GENERIC PHARMACEUTICAL EQUIVALENT, 30 TABLETS (PVC-ALUMINUM))
     Route: 048
     Dates: start: 20230415, end: 20240506
  7. HEPARIN SODIUM [Interacting]
     Active Substance: HEPARIN SODIUM
     Indication: Acute myocardial infarction
     Dosage: 5000 INTERNATIONAL UNIT, QD
     Route: 042
     Dates: start: 20240504, end: 20240504

REACTIONS (4)
  - Haematemesis [Recovered/Resolved]
  - Melaena [Recovered/Resolved]
  - Hypovolaemic shock [Recovered/Resolved]
  - Drug interaction [Unknown]

NARRATIVE: CASE EVENT DATE: 20240510
